FAERS Safety Report 10548917 (Version 2)
Quarter: 2014Q4

REPORT INFORMATION
  Report Type: Report from Study
  Country: JP (occurrence: JP)
  Receive Date: 20141028
  Receipt Date: 20141209
  Transmission Date: 20150529
  Serious: Yes (Other)
  Sender: FDA-Public Use
  Company Number: JP-MYLANLABS-2014M1008443

PATIENT

DRUGS (7)
  1. CAPTOPRIL. [Concomitant]
     Active Substance: CAPTOPRIL
     Dosage: 5MG
     Route: 065
  2. DIGOXIN. [Suspect]
     Active Substance: DIGOXIN
     Dosage: 0.125MG
     Route: 065
  3. PLETAAL [Suspect]
     Active Substance: CILOSTAZOL
     Indication: ARTERIAL OCCLUSIVE DISEASE
     Dosage: 200MG
     Route: 065
     Dates: start: 20050211, end: 20050602
  4. WARFARIN [Concomitant]
     Active Substance: WARFARIN
     Dosage: 1MG
     Route: 065
  5. CARVEDILOL. [Concomitant]
     Active Substance: CARVEDILOL
     Dosage: 2.5MG
     Route: 065
  6. FUROSEMIDE. [Concomitant]
     Active Substance: FUROSEMIDE
     Dosage: 20MG
     Route: 065
  7. ASPIRIN. [Concomitant]
     Active Substance: ASPIRIN
     Dosage: 100MG
     Route: 065

REACTIONS (2)
  - Gynaecomastia [Unknown]
  - Bradycardia [Unknown]
